FAERS Safety Report 9744269 (Version 1)
Quarter: 2013Q4

REPORT INFORMATION
  Report Type: Spontaneous
  Country: US (occurrence: US)
  Receive Date: 20131210
  Receipt Date: 20131210
  Transmission Date: 20140711
  Serious: No
  Sender: FDA-Public Use
  Company Number: US-BIOGENIDEC-2013BI102158

PATIENT
  Age: 75 Year
  Sex: Male

DRUGS (10)
  1. TECFIDERA [Suspect]
     Indication: MULTIPLE SCLEROSIS
     Route: 048
     Dates: start: 20130608
  2. NORVASC [Concomitant]
  3. PRILOSEC [Concomitant]
  4. RESTORIL [Concomitant]
  5. AMITRIPTYLINE HCL [Concomitant]
  6. METFORMIN [Concomitant]
  7. BACLOFEN [Concomitant]
  8. ZYRTEC [Concomitant]
  9. ZOCOR [Concomitant]
  10. AMPYRA [Concomitant]
     Indication: GAIT DISTURBANCE
     Route: 048
     Dates: start: 201005

REACTIONS (2)
  - Flushing [Not Recovered/Not Resolved]
  - Burning sensation [Recovered/Resolved]
